FAERS Safety Report 18888906 (Version 1)
Quarter: 2021Q1

REPORT INFORMATION
  Report Type: Spontaneous
  Country: DK (occurrence: DK)
  Receive Date: 20210213
  Receipt Date: 20210213
  Transmission Date: 20210420
  Serious: Yes (Other)
  Sender: FDA-Public Use
  Company Number: DK-ROCHE-2768560

PATIENT
  Age: 39 Year
  Sex: Female

DRUGS (5)
  1. RIVOTRIL [Suspect]
     Active Substance: CLONAZEPAM
     Indication: BIPOLAR DISORDER
     Dosage: STRENGTH: 0,5 MG.?DOSAGE: 1 TABLETS AS NECESSARY MAX 3 TABLETS DAILY.
     Route: 065
  2. LITHIUM CITRATE. [Suspect]
     Active Substance: LITHIUM CITRATE
     Indication: BIPOLAR DISORDER
     Dosage: STRENGTH: 6 MMOL LI+.
     Route: 065
     Dates: start: 20191106
  3. VENLAFAXINE [Concomitant]
     Active Substance: VENLAFAXINE HYDROCHLORIDE
     Indication: DEPRESSION
     Dates: start: 20140110, end: 20200115
  4. QUETIAPINE. [Suspect]
     Active Substance: QUETIAPINE
     Indication: BIPOLAR DISORDER
     Dosage: STRENGTH: 100 MG
     Route: 065
     Dates: start: 20191113
  5. RISPERIDONE. [Concomitant]
     Active Substance: RISPERIDONE
     Indication: MENTAL DISORDER
     Dates: start: 20151024, end: 20200115

REACTIONS (7)
  - Myalgia [Recovering/Resolving]
  - Affective disorder [Recovering/Resolving]
  - Anxiety [Recovering/Resolving]
  - Acne [Recovering/Resolving]
  - Hallucination, auditory [Recovering/Resolving]
  - Tachyphrenia [Recovering/Resolving]
  - Tremor [Recovering/Resolving]

NARRATIVE: CASE EVENT DATE: 20200403
